FAERS Safety Report 4699649-0 (Version None)
Quarter: 2005Q2

REPORT INFORMATION
  Report Type: 
  Country: None (occurrence: None)
  Receive Date: 20050623
  Receipt Date: 20050616
  Transmission Date: 20051028
  Serious: Yes (Hospitalization)
  Sender: FDA-Public Use
  Company Number: FRWYE749516JUN05

PATIENT
  Age: 58 Year
  Sex: Male

DRUGS (6)
  1. WYTENS (BISOPROLOL/HYDROCHLOROTHIAZIDE, TABLET, 0) [Suspect]
     Dosage: SEE IMAGE
     Route: 048
     Dates: end: 20050201
  2. VALSARTAN [Suspect]
     Dosage: 160 MG 1X PER 1 DAY ORAL
     Route: 048
     Dates: end: 20050201
  3. DAONIN (GLIBENCLAMIDE) [Concomitant]
  4. DI-ACTANE (NAFTIDROFURYL OXALATE) [Concomitant]
  5. ALLOPURINOL [Concomitant]
  6. PLAVIX [Concomitant]

REACTIONS (6)
  - BLOOD LACTATE DEHYDROGENASE INCREASED [None]
  - BLOOD TRIGLYCERIDES INCREASED [None]
  - CAROTID ARTERY ATHEROMA [None]
  - CEREBROVASCULAR ACCIDENT [None]
  - LOSS OF CONSCIOUSNESS [None]
  - RENAL FAILURE ACUTE [None]
